FAERS Safety Report 8220682-6 (Version None)
Quarter: 2012Q1

REPORT INFORMATION
  Report Type: 
  Country: None (occurrence: None)
  Receive Date: 20120320
  Receipt Date: 20120307
  Transmission Date: 20120608
  Serious: Yes (Hospitalization, Other)
  Sender: FDA-Public Use
  Company Number: SE-ELI_LILLY_AND_COMPANY-SE201202001614

PATIENT
  Sex: Female

DRUGS (5)
  1. CYMBALTA [Suspect]
     Dosage: 60 MG, QD
     Route: 048
     Dates: start: 20111010
  2. CYMBALTA [Suspect]
     Indication: DEPRESSION
     Dosage: 30 MG, QD
     Route: 048
     Dates: start: 20111006
  3. ZYPREXA [Concomitant]
  4. CYMBALTA [Suspect]
     Dosage: 30 MG, QD
     Route: 048
     Dates: start: 20111014, end: 20111014
  5. HYDROXYZINE                        /00058401/ [Concomitant]

REACTIONS (3)
  - SELF-INJURIOUS IDEATION [None]
  - SUICIDAL IDEATION [None]
  - IMPULSIVE BEHAVIOUR [None]
